FAERS Safety Report 4774940-8 (Version None)
Quarter: 2005Q3

REPORT INFORMATION
  Report Type: 
  Country: None (occurrence: None)
  Receive Date: 20050920
  Receipt Date: 20050906
  Transmission Date: 20060218
  Serious: Yes (Other)
  Sender: FDA-Public Use
  Company Number: B0392851A

PATIENT
  Age: 41 Year
  Sex: Male

DRUGS (6)
  1. AGENERASE [Suspect]
     Indication: HIV INFECTION
  2. EPIVIR [Suspect]
     Indication: HIV INFECTION
  3. STAVUDINE [Suspect]
     Indication: HIV INFECTION
  4. SAQUINAVIR (SAQUINAVIR) [Suspect]
     Indication: HIV INFECTION
  5. GANCICLOVIR [Concomitant]
  6. ANTIBIOTICS [Concomitant]

REACTIONS (12)
  - BRONCHIECTASIS [None]
  - BRONCHOALVEOLAR LAVAGE ABNORMAL [None]
  - CD4 LYMPHOCYTES DECREASED [None]
  - COLITIS [None]
  - CYTOMEGALOVIRUS INFECTION [None]
  - IMMUNE RECONSTITUTION SYNDROME [None]
  - LUNG DISORDER [None]
  - LUNG INFECTION PSEUDOMONAL [None]
  - OESOPHAGITIS [None]
  - PNEUMONIA [None]
  - PNEUMONITIS [None]
  - RESPIRATORY DISORDER [None]
